FAERS Safety Report 7030158-X (Version None)
Quarter: 2010Q4

REPORT INFORMATION
  Report Type: 
  Country: None (occurrence: None)
  Receive Date: 20101006
  Receipt Date: 20101005
  Transmission Date: 20110411
  Serious: Yes (Hospitalization)
  Sender: FDA-Public Use
  Company Number: IT-SANOFI-AVENTIS-2010SA022099

PATIENT
  Age: 62 Year
  Sex: Male

DRUGS (4)
  1. ARAVA [Suspect]
     Route: 048
     Dates: start: 20091013, end: 20100409
  2. NICOZID [Suspect]
     Route: 048
     Dates: start: 20100108, end: 20100409
  3. PYRIDOXINE HYDROCHLORIDE [Concomitant]
     Indication: PRODUCT USED FOR UNKNOWN INDICATION
     Route: 065
  4. OMEPRAZOLE [Concomitant]
     Indication: PRODUCT USED FOR UNKNOWN INDICATION
     Route: 065

REACTIONS (6)
  - ASTHENIA [None]
  - CHROMATURIA [None]
  - FAECES DISCOLOURED [None]
  - HEPATITIS [None]
  - HEPATOMEGALY [None]
  - JAUNDICE [None]
